FAERS Safety Report 8654241 (Version 4)
Quarter: 2012Q4

REPORT INFORMATION
  Report Type: Report from Study
  Country: JP (occurrence: JP)
  Receive Date: 20120709
  Receipt Date: 20121111
  Transmission Date: 20130627
  Serious: Yes (Death, Hospitalization, Other)
  Sender: FDA-Public Use
  Company Number: PHHY2009JP22903

PATIENT
  Age: 78 Year
  Sex: Male

DRUGS (5)
  1. AMN107 [Suspect]
     Indication: CHRONIC MYELOID LEUKAEMIA
     Dosage: 800 mg, daily
     Route: 048
     Dates: start: 20090415, end: 20090419
  2. AMN107 [Suspect]
     Dosage: 400 mg, per day
     Route: 048
     Dates: start: 20090425, end: 20110824
  3. PREDONINE [Concomitant]
     Indication: CHRONIC MYELOID LEUKAEMIA
     Dosage: 5 mg, UNK
     Route: 048
     Dates: start: 20090215, end: 20090518
  4. ALLEGRA [Concomitant]
     Indication: CHRONIC MYELOID LEUKAEMIA
     Dosage: 120 mg, UNK
     Route: 048
     Dates: start: 20090215, end: 20090518
  5. LOXONIN [Concomitant]
     Indication: LUMBAR VERTEBRAL FRACTURE
     Dosage: 120 mg, UNK
     Route: 048
     Dates: start: 20090215

REACTIONS (5)
  - Pneumonia [Fatal]
  - Lipase increased [Recovering/Resolving]
  - C-reactive protein increased [Not Recovered/Not Resolved]
  - Blood uric acid increased [Recovered/Resolved]
  - Blood urea increased [Recovered/Resolved]
